FAERS Safety Report 5301481-1 (Version None)
Quarter: 2007Q2

REPORT INFORMATION
  Report Type: 
  Country: None (occurrence: None)
  Receive Date: 20070412
  Receipt Date: 20070328
  Transmission Date: 20071010
  Serious: Yes (Hospitalization)
  Sender: FDA-Public Use
  Company Number: 2007S1002737

PATIENT
  Age: 7 Year
  Sex: Male

DRUGS (4)
  1. FLUVOXAMINE MALEATE [Suspect]
     Indication: OBSESSIVE-COMPULSIVE DISORDER
     Dosage: SEE IMAGE
     Route: 048
     Dates: start: 20011101, end: 20011204
  2. FLUVOXAMINE MALEATE [Suspect]
     Indication: OBSESSIVE-COMPULSIVE DISORDER
     Dosage: SEE IMAGE
     Route: 048
     Dates: start: 20011012
  3. FLUVOXAMINE MALEATE [Suspect]
     Indication: OBSESSIVE-COMPULSIVE DISORDER
     Dosage: SEE IMAGE
     Route: 048
     Dates: end: 20040101
  4. FLUVOXAMINE MALEATE [Suspect]
     Indication: OBSESSIVE-COMPULSIVE DISORDER
     Dosage: SEE IMAGE
     Route: 048
     Dates: start: 20011204

REACTIONS (14)
  - ABNORMAL BEHAVIOUR [None]
  - AGGRESSION [None]
  - ANGER [None]
  - CONDITION AGGRAVATED [None]
  - CRYING [None]
  - DISSOCIATION [None]
  - DRUG INEFFECTIVE [None]
  - HOMICIDAL IDEATION [None]
  - INSOMNIA [None]
  - OBSESSIVE-COMPULSIVE DISORDER [None]
  - PARANOIA [None]
  - SCREAMING [None]
  - SELF-INJURIOUS IDEATION [None]
  - SUICIDAL IDEATION [None]
